FAERS Safety Report 17400195 (Version 1)
Quarter: 2020Q1

REPORT INFORMATION
  Report Type: Spontaneous
  Country: ES (occurrence: ES)
  Receive Date: 20200211
  Receipt Date: 20200211
  Transmission Date: 20200409
  Serious: Yes (Hospitalization, Other)
  Sender: FDA-Public Use
  Company Number: ES-TEVA-2020-ES-1181307

PATIENT
  Age: 40 Year
  Sex: Male

DRUGS (4)
  1. DULOXETINE. [Interacting]
     Active Substance: DULOXETINE
     Dosage: 60 MILLIGRAM DAILY;
     Route: 048
  2. NAPROXEN 250 MG, 375 MG AND 500 MG TABLETS [Suspect]
     Active Substance: NAPROXEN
     Dosage: UP TO 1,500 MG
     Route: 048
  3. DESVENLAFAXINE. [Suspect]
     Active Substance: DESVENLAFAXINE
     Dosage: 400 MILLIGRAM DAILY;
  4. METAMIZOLE [Concomitant]
     Active Substance: METAMIZOLE
     Dosage: 1725 MILLIGRAM DAILY;
     Route: 048

REACTIONS (6)
  - Drug interaction [Unknown]
  - Gastrointestinal haemorrhage [Unknown]
  - Melaena [Unknown]
  - Abdominal pain [Unknown]
  - Duodenal ulcer [Unknown]
  - Constipation [Unknown]
